FAERS Safety Report 7022041-0 (Version None)
Quarter: 2010Q3

REPORT INFORMATION
  Report Type: 
  Country: None (occurrence: None)
  Receive Date: 20100930
  Receipt Date: 20100918
  Transmission Date: 20110219
  Serious: Yes (Other)
  Sender: FDA-Public Use
  Company Number: IT-BAYER-201040041GPV

PATIENT

DRUGS (4)
  1. FLUDARABINE [Suspect]
     Indication: NON-HODGKIN'S LYMPHOMA
     Dosage: DAILY FOR 3 DAYS; EACH CYCLE WAS REPEATED EVERY 28 DAYS FOR 6 COURSES
     Route: 042
  2. CYCLOPHOSPHAMIDE [Suspect]
     Indication: NON-HODGKIN'S LYMPHOMA
     Dosage: DAILY FOR 3 DAYS; EACH CYCLE WAS REPEATED EVERY 28 DAYS FOR 6 COURSES
     Route: 042
  3. TRIMETHOPRIM + SULFAMETHOXAZOLE [Concomitant]
     Indication: PROPHYLAXIS
     Route: 048
  4. FLUCONAZOLE [Concomitant]
     Indication: PROPHYLAXIS

REACTIONS (1)
  - NEPHROPATHY TOXIC [None]
